FAERS Safety Report 24552611 (Version 1)
Quarter: 2024Q4

REPORT INFORMATION
  Report Type: Report from Study
  Country: US (occurrence: US)
  Receive Date: 20241026
  Receipt Date: 20241026
  Transmission Date: 20250115
  Serious: Yes (Hospitalization, Disabling)
  Sender: ALEXION PHARMACEUTICALS
  Company Number: US-AstraZeneca-CH-00719267A

PATIENT

DRUGS (4)
  1. TRUQAP [Suspect]
     Active Substance: CAPIVASERTIB
     Indication: Product used for unknown indication
  2. TRUQAP [Suspect]
     Active Substance: CAPIVASERTIB
  3. TRUQAP [Suspect]
     Active Substance: CAPIVASERTIB
  4. TRUQAP [Suspect]
     Active Substance: CAPIVASERTIB

REACTIONS (2)
  - Adverse drug reaction [Recovered/Resolved]
  - Gait disturbance [Recovered/Resolved]
